FAERS Safety Report 16535010 (Version 1)
Quarter: 2019Q3

REPORT INFORMATION
  Report Type: Other
  Country: US (occurrence: US)
  Receive Date: 20190705
  Receipt Date: 20190705
  Transmission Date: 20191004
  Serious: Yes (Death, Other)
  Sender: FDA-Public Use
  Company Number: US-AMAG PHARMACEUTICALS, INC.-AMAG201902172

PATIENT
  Age: 0 Day

DRUGS (1)
  1. MAKENA [Suspect]
     Active Substance: HYDROXYPROGESTERONE CAPROATE
     Indication: FOETAL EXPOSURE DURING PREGNANCY
     Dosage: 250MG/ML, WEEKLY
     Route: 064
     Dates: start: 20190207, end: 20190404

REACTIONS (1)
  - Stillbirth [Fatal]

NARRATIVE: CASE EVENT DATE: 20190407
